FAERS Safety Report 13292556 (Version 1)
Quarter: 2017Q1

REPORT INFORMATION
  Report Type: Spontaneous
  Country: TW (occurrence: TW)
  Receive Date: 20170303
  Receipt Date: 20170303
  Transmission Date: 20170428
  Serious: Yes (Death, Other)
  Sender: FDA-Public Use
  Company Number: TW-BAYER-2017-036393

PATIENT
  Age: 68 Year
  Sex: Male

DRUGS (1)
  1. NEXAVAR [Suspect]
     Active Substance: SORAFENIB
     Dosage: UNK
     Dates: start: 20160729, end: 20160916

REACTIONS (5)
  - Respiratory failure [Fatal]
  - Thyroid cancer stage IV [Fatal]
  - Lymphadenopathy [None]
  - Lymphadenopathy mediastinal [None]
  - Pleural effusion [None]

NARRATIVE: CASE EVENT DATE: 20160825
